FAERS Safety Report 14336762 (Version 1)
Quarter: 2017Q4

REPORT INFORMATION
  Report Type: Spontaneous
  Country: US (occurrence: US)
  Receive Date: 20171229
  Receipt Date: 20171229
  Transmission Date: 20180321
  Serious: No
  Sender: FDA-Public Use
  Company Number: US-BAYER-2017-248599

PATIENT
  Age: 45 Year
  Sex: Female

DRUGS (2)
  1. MIRENA [Suspect]
     Active Substance: LEVONORGESTREL
     Indication: CONTRACEPTION
     Dosage: 20 MCG/24HR, CONT
     Route: 015
     Dates: start: 2013
  2. MIRENA [Suspect]
     Active Substance: LEVONORGESTREL

REACTIONS (7)
  - Menorrhagia [Not Recovered/Not Resolved]
  - Metrorrhagia [Not Recovered/Not Resolved]
  - Mammogram abnormal [None]
  - Menstruation irregular [Not Recovered/Not Resolved]
  - Mammogram abnormal [None]
  - Hypertension [Not Recovered/Not Resolved]
  - Breast cyst [None]

NARRATIVE: CASE EVENT DATE: 201704
